FAERS Safety Report 9981265 (Version 1)
Quarter: 2014Q1

REPORT INFORMATION
  Report Type: Spontaneous
  Country: US (occurrence: None)
  Receive Date: 20140305
  Receipt Date: 20140305
  Transmission Date: 20141002
  Serious: Yes (Hospitalization)
  Sender: FDA-Public Use
  Company Number: 2014-000445

PATIENT
  Sex: Female

DRUGS (1)
  1. ASACOL [Suspect]
     Route: 048
     Dates: start: 2006

REACTIONS (3)
  - Pleural effusion [None]
  - Pneumothorax [None]
  - Pulmonary oedema [None]
